FAERS Safety Report 5479184-2 (Version None)
Quarter: 2007Q4

REPORT INFORMATION
  Report Type: 
  Country: None (occurrence: None)
  Receive Date: 20071008
  Receipt Date: 20070919
  Transmission Date: 20080405
  Serious: Yes (Other)
  Sender: FDA-Public Use
  Company Number: GXKR2007IT04744

PATIENT
  Age: 9 Day
  Sex: Male

DRUGS (3)
  1. LORAZEPAM [Suspect]
     Dosage: TRANSPLACENTAL
     Route: 064
     Dates: start: 20061128, end: 20070301
  2. ELOPRAM(CITALOPRAM) UNKNOWN,40MG/ML [Suspect]
     Dosage: TRANSPLACENTAL
     Route: 064
     Dates: start: 20061212, end: 20070301
  3. PAROXETINE [Concomitant]

REACTIONS (5)
  - AGITATION [None]
  - AGITATION NEONATAL [None]
  - DRUG EXPOSURE DURING PREGNANCY [None]
  - INSOMNIA [None]
  - PREMATURE BABY [None]
